FAERS Safety Report 22120034 (Version 2)
Quarter: 2024Q1

REPORT INFORMATION
  Report Type: Spontaneous
  Country: US (occurrence: None)
  Receive Date: 20230321
  Receipt Date: 20240319
  Transmission Date: 20240410
  Serious: No
  Sender: FDA-Public Use
  Company Number: US-ROCHE-3225479

PATIENT
  Age: 61 Year
  Sex: Male
  Weight: 74.91 kg

DRUGS (3)
  1. ERIVEDGE [Suspect]
     Active Substance: VISMODEGIB
     Indication: Malignant connective tissue neoplasm
     Route: 048
     Dates: start: 20221110
  2. ERIVEDGE [Suspect]
     Active Substance: VISMODEGIB
     Indication: Basal cell carcinoma
  3. EXCEDRIN EXTRA STRENGTH [Concomitant]
     Active Substance: ACETAMINOPHEN\ASPIRIN\CAFFEINE
     Dosage: 250-250

REACTIONS (11)
  - Headache [Recovered/Resolved]
  - Nausea [Recovered/Resolved]
  - Ear pain [Unknown]
  - Fatigue [Unknown]
  - Somnolence [Unknown]
  - Weight decreased [Unknown]
  - Ageusia [Unknown]
  - Taste disorder [Unknown]
  - Muscle spasms [Unknown]
  - Extra dose administered [Unknown]
  - Off label use [Unknown]

NARRATIVE: CASE EVENT DATE: 20221110
